FAERS Safety Report 19238677 (Version 1)
Quarter: 2021Q2

REPORT INFORMATION
  Report Type: Spontaneous
  Country: PT (occurrence: PT)
  Receive Date: 20210510
  Receipt Date: 20210510
  Transmission Date: 20210717
  Serious: Yes (Other)
  Sender: FDA-Public Use
  Company Number: PT-FRESENIUS KABI-FK202104650

PATIENT
  Age: 67 Year
  Sex: Female

DRUGS (8)
  1. PARACETAMOL [Concomitant]
     Active Substance: ACETAMINOPHEN
     Indication: PRODUCT USED FOR UNKNOWN INDICATION
     Route: 065
  2. TRANEXAMIC ACID. [Concomitant]
     Active Substance: TRANEXAMIC ACID
     Indication: PRODUCT USED FOR UNKNOWN INDICATION
     Route: 065
  3. MIDAZOLAM. [Concomitant]
     Active Substance: MIDAZOLAM
     Indication: PRODUCT USED FOR UNKNOWN INDICATION
     Route: 042
  4. CALCIUM GLUCONATE INJECTION (MANUFACTURER UNKNOWN) [Suspect]
     Active Substance: CALCIUM GLUCONATE
     Indication: EVIDENCE BASED TREATMENT
     Route: 065
  5. MIDAZOLAM. [Concomitant]
     Active Substance: MIDAZOLAM
     Route: 042
  6. MAGNESIUM SULFATE (MANUFACTURER UNKNOWN) [Suspect]
     Active Substance: MAGNESIUM SULFATE
     Indication: EVIDENCE BASED TREATMENT
     Route: 042
  7. BUPIVACAINE HYDROCHLORIDE. [Concomitant]
     Active Substance: BUPIVACAINE HYDROCHLORIDE
     Indication: SPINAL ANAESTHESIA
     Route: 050
  8. PROPOFOL. [Concomitant]
     Active Substance: PROPOFOL
     Indication: SEDATIVE THERAPY
     Route: 065

REACTIONS (2)
  - Hyperlactacidaemia [Recovered/Resolved]
  - Hyperthermia [Recovered/Resolved]
